FAERS Safety Report 25380445 (Version 2)
Quarter: 2025Q2

REPORT INFORMATION
  Report Type: Spontaneous
  Country: US (occurrence: US)
  Receive Date: 20250530
  Receipt Date: 20250624
  Transmission Date: 20250717
  Serious: No
  Sender: BAYER HEALTHCARE PHARMACEUTICALS INC.
  Company Number: US-BAYER-2025A070394

PATIENT
  Age: 74 Year
  Sex: Female

DRUGS (2)
  1. STIVARGA [Suspect]
     Active Substance: REGORAFENIB MONOHYDRATE
     Dates: start: 20250501
  2. QINLOCK [Concomitant]
     Active Substance: RIPRETINIB

REACTIONS (10)
  - Nausea [None]
  - Diarrhoea [None]
  - Fatigue [None]
  - Dry mouth [None]
  - Lip dry [None]
  - Dry throat [None]
  - Dysphagia [None]
  - Abdominal pain upper [None]
  - Pain in extremity [None]
  - Ejection fraction abnormal [None]

NARRATIVE: CASE EVENT DATE: 20250501
